FAERS Safety Report 7399694-0 (Version None)
Quarter: 2011Q2

REPORT INFORMATION
  Report Type: 
  Country: None (occurrence: None)
  Receive Date: 20110407
  Receipt Date: 20110329
  Transmission Date: 20111010
  Serious: Yes (Hospitalization)
  Sender: FDA-Public Use
  Company Number: JP-ROCHE-755596

PATIENT
  Age: 35 Year
  Sex: Male

DRUGS (8)
  1. ATAZANAVIR [Suspect]
     Indication: HIV INFECTION
     Route: 048
     Dates: start: 20091022, end: 20091202
  2. EMTRICITABINE/TENOFOVIR DISOPROXIL FUMARATE [Suspect]
     Indication: HIV INFECTION
     Route: 048
     Dates: start: 20091022, end: 20091202
  3. DARUNAVIR [Suspect]
     Indication: HIV INFECTION
     Route: 048
     Dates: start: 20091203
  4. RIFABUTIN [Suspect]
     Indication: MYCOBACTERIUM AVIUM COMPLEX INFECTION
     Route: 048
     Dates: start: 20090120, end: 20091211
  5. RITONAVIR [Suspect]
     Indication: HIV INFECTION
     Route: 048
     Dates: start: 20091022
  6. LAMIVUDINE [Suspect]
     Indication: HIV INFECTION
     Route: 048
     Dates: start: 20091211
  7. VALGANCICLOVIR [Suspect]
     Indication: CYTOMEGALOVIRUS INFECTION
     Dosage: INITIAL THERAPY.
     Route: 048
     Dates: start: 20100106, end: 20100127
  8. VALGANCICLOVIR [Suspect]
     Dosage: MAINTENANCE THERAPY.
     Route: 048
     Dates: start: 20100216

REACTIONS (4)
  - MYCOBACTERIUM AVIUM COMPLEX INFECTION [None]
  - CYTOMEGALOVIRUS CHORIORETINITIS [None]
  - HYPERURICAEMIA [None]
  - RENAL IMPAIRMENT [None]
